FAERS Safety Report 15492767 (Version 1)
Quarter: 2018Q4

REPORT INFORMATION
  Report Type: Spontaneous
  Country: IN (occurrence: IN)
  Receive Date: 20181012
  Receipt Date: 20181012
  Transmission Date: 20190205
  Serious: Yes (Other)
  Sender: FDA-Public Use
  Company Number: IN-PFIZER INC-2017420370

PATIENT
  Age: 44 Year
  Sex: Female

DRUGS (3)
  1. SHELCAL [Concomitant]
     Dosage: UNK UNK, 1X/DAY(1 MONTH)
  2. PALBACE [Suspect]
     Active Substance: PALBOCICLIB
     Indication: BREAST CANCER METASTATIC
     Dosage: 125 MG, 1X/DAY (21 DAYS)
     Route: 048
     Dates: end: 201809
  3. LETROZOLE. [Concomitant]
     Active Substance: LETROZOLE
     Dosage: 2.5 MG, 1X/DAY

REACTIONS (3)
  - Pyrexia [Unknown]
  - Spinal fracture [Unknown]
  - White blood cell count decreased [Unknown]
